FAERS Safety Report 11223882 (Version 2)
Quarter: 2015Q3

REPORT INFORMATION
  Report Type: Spontaneous
  Country: ES (occurrence: ES)
  Receive Date: 20150629
  Receipt Date: 20150724
  Transmission Date: 20151125
  Serious: Yes (Other)
  Sender: FDA-Public Use
  Company Number: ES-AMGEN-ESPSP2015052396

PATIENT
  Age: 58 Year
  Sex: Female

DRUGS (5)
  1. ENBREL [Suspect]
     Active Substance: ETANERCEPT
     Indication: RHEUMATOID ARTHRITIS
     Dosage: 50 MG, WEEKLY (EVERY WEDNESDAY)
     Route: 058
     Dates: start: 201501
  2. LORAZEPAM. [Concomitant]
     Active Substance: LORAZEPAM
     Indication: SLEEP DISORDER
     Dosage: 1 MG, 1X/DAY (AT NIGHTS)
  3. LEVOGASTROL [Concomitant]
     Indication: DYSPEPSIA
     Dosage: 25 MG, 2X/DAY (1 BEFORE LUNCH, 1 BEFORE DINNER)
  4. ENBREL [Suspect]
     Active Substance: ETANERCEPT
     Dosage: 50 MG, WEEKLY
     Route: 058
  5. ESOMEPRAZOL STADA                  /01479302/ [Concomitant]
     Indication: PROPHYLAXIS
     Dosage: 20 MG, 1X/DAY

REACTIONS (7)
  - Fall [Unknown]
  - Injection site pain [Unknown]
  - Vertigo [Not Recovered/Not Resolved]
  - Injection site urticaria [Unknown]
  - Ligament sprain [Not Recovered/Not Resolved]
  - Tinnitus [Not Recovered/Not Resolved]
  - Loss of consciousness [Unknown]

NARRATIVE: CASE EVENT DATE: 2015
